FAERS Safety Report 13568293 (Version 1)
Quarter: 2017Q2

REPORT INFORMATION
  Report Type: Spontaneous
  Country: BE (occurrence: BE)
  Receive Date: 20170522
  Receipt Date: 20170522
  Transmission Date: 20170830
  Serious: Yes (Other)
  Sender: FDA-Public Use
  Company Number: BE-EMD SERONO-8157568

PATIENT
  Sex: Female

DRUGS (1)
  1. REBIF [Suspect]
     Active Substance: INTERFERON BETA-1A
     Indication: MULTIPLE SCLEROSIS
     Route: 058
     Dates: start: 20170105, end: 20170510

REACTIONS (7)
  - Blood thyroid stimulating hormone decreased [Unknown]
  - Fatigue [Unknown]
  - Tri-iodothyronine increased [Unknown]
  - Anti-thyroid antibody positive [Unknown]
  - Weight decreased [Unknown]
  - Thyroxine free increased [Unknown]
  - Thyroid disorder [Unknown]

NARRATIVE: CASE EVENT DATE: 2017
